FAERS Safety Report 10016321 (Version 2)
Quarter: 2014Q2

REPORT INFORMATION
  Report Type: Spontaneous
  Country: US (occurrence: US)
  Receive Date: 20140317
  Receipt Date: 20140423
  Transmission Date: 20141212
  Serious: No
  Sender: FDA-Public Use
  Company Number: US-PFIZER INC-2014076537

PATIENT
  Age: 80 Year
  Sex: Female
  Weight: 58.96 kg

DRUGS (5)
  1. LYRICA [Suspect]
     Indication: OSTEOARTHRITIS
     Dosage: 25 MG, SINGLE, 2X/DAY
     Route: 048
     Dates: start: 20140311, end: 20140311
  2. LYRICA [Suspect]
     Indication: MUSCULOSKELETAL PAIN
  3. LYRICA [Suspect]
     Indication: NEURALGIA
  4. PROPANOLOL [Concomitant]
     Indication: HYPERTENSION
     Dosage: 30 MG, 1X/DAY
  5. HYDROCHLOROTHIAZIDE/TRIAMTERENE [Concomitant]
     Indication: HYPERTENSION
     Dosage: TRIAMTERENE 37.5MG/HYDROCHLOROTHIAZIDE 25MG, DAILY

REACTIONS (5)
  - Off label use [Unknown]
  - Pain [Unknown]
  - Feeling abnormal [Unknown]
  - Dysphonia [Unknown]
  - Hypokinesia [Unknown]
